FAERS Safety Report 6587728-2 (Version None)
Quarter: 2010Q1

REPORT INFORMATION
  Report Type: 
  Country: None (occurrence: None)
  Receive Date: 20100218
  Receipt Date: 20100119
  Transmission Date: 20100710
  Serious: No
  Sender: FDA-Public Use
  Company Number: A0840285A

PATIENT
  Age: 82 Year
  Sex: Female

DRUGS (10)
  1. COREG CR [Suspect]
     Dosage: 20MG PER DAY
     Route: 048
     Dates: start: 20100105
  2. LIPITOR [Concomitant]
     Dosage: 40MG PER DAY
  3. PREDNISONE [Concomitant]
  4. CEPHALEXIN [Concomitant]
  5. OMEPRAZOLE [Concomitant]
  6. PAROXETINE HCL [Concomitant]
  7. AMBIEN [Concomitant]
  8. CALCIUM W/VITAMIN D [Concomitant]
  9. ACTONEL [Concomitant]
  10. BABY ASPIRIN [Concomitant]

REACTIONS (2)
  - EYE DISORDER [None]
  - FEELING ABNORMAL [None]
